FAERS Safety Report 6566125-X (Version None)
Quarter: 2010Q1

REPORT INFORMATION
  Report Type: 
  Country: None (occurrence: None)
  Receive Date: 20100202
  Receipt Date: 20100121
  Transmission Date: 20100710
  Serious: Yes (Other)
  Sender: FDA-Public Use
  Company Number: US-JNJFOC-20100110396

PATIENT
  Sex: Female

DRUGS (3)
  1. CHILDREN'S TYLENOL PLUS COLD [Suspect]
     Indication: NASAL CONGESTION
     Route: 048
  2. CHILDREN'S TYLENOL PLUS COLD [Suspect]
     Indication: HEADACHE
     Route: 048
  3. CHILDREN'S TYLENOL PLUS COLD [Suspect]
     Indication: NASOPHARYNGITIS
     Route: 048

REACTIONS (3)
  - DIARRHOEA [None]
  - TRANSMISSION OF AN INFECTIOUS AGENT VIA A MEDICINAL PRODUCT [None]
  - VOMITING [None]
